FAERS Safety Report 6437738-0 (Version None)
Quarter: 2009Q4

REPORT INFORMATION
  Report Type: 
  Country: None (occurrence: None)
  Receive Date: 20091112
  Receipt Date: 20091103
  Transmission Date: 20100525
  Serious: Yes (Other)
  Sender: FDA-Public Use
  Company Number: US-PFIZER INC-2009293377

PATIENT
  Age: 56 Year
  Sex: Female
  Weight: 80.739 kg

DRUGS (6)
  1. AMLODIPINE BESYLATE [Suspect]
     Indication: HYPERTENSION
     Dosage: UNK
     Dates: start: 20090101
  2. AMLODIPINE BESYLATE [Suspect]
     Dosage: UNK
  3. AMLODIPINE [Suspect]
     Indication: HYPERTENSION
     Dosage: 10 MG, UNK
     Dates: start: 20090101
  4. PROZAC [Concomitant]
     Dosage: 10 MG, UNK
  5. ALPRAZOLAM [Concomitant]
     Dosage: UNK
  6. ZYRTEC [Concomitant]
     Dosage: 10 MG, UNK

REACTIONS (3)
  - ABDOMINAL DISTENSION [None]
  - COELIAC DISEASE [None]
  - HAEMATOCHEZIA [None]
